FAERS Safety Report 17446312 (Version 1)
Quarter: 2020Q1

REPORT INFORMATION
  Report Type: Report from Study
  Country: US (occurrence: US)
  Receive Date: 20200221
  Receipt Date: 20200221
  Transmission Date: 20200409
  Serious: Yes (Death)
  Sender: FDA-Public Use
  Company Number: US-ASTRAZENECA-2019SF70350

PATIENT
  Age: 19231 Day
  Sex: Female
  Weight: 63.5 kg

DRUGS (1)
  1. CALQUENCE [Suspect]
     Active Substance: ACALABRUTINIB
     Indication: MANTLE CELL LYMPHOMA
     Dosage: 100 MG TWICE A DAY AFTER MEALS
     Route: 048
     Dates: start: 20191025, end: 20191124

REACTIONS (2)
  - Death [Fatal]
  - Product dose omission [Unknown]

NARRATIVE: CASE EVENT DATE: 20191125
